FAERS Safety Report 10413133 (Version 1)
Quarter: 2014Q3

REPORT INFORMATION
  Report Type: Spontaneous
  Country: US (occurrence: US)
  Receive Date: 20140827
  Receipt Date: 20140827
  Transmission Date: 20150326
  Serious: Yes (Other)
  Sender: FDA-Public Use
  Company Number: US-BRISTOL-MYERS SQUIBB COMPANY-21316781

PATIENT
  Sex: Male

DRUGS (1)
  1. BYETTA [Suspect]
     Active Substance: EXENATIDE
     Dosage: REDUCED TO 5MCG

REACTIONS (4)
  - Nausea [Unknown]
  - Dizziness [Unknown]
  - Blood glucose fluctuation [Unknown]
  - Gastric cancer [Unknown]
